FAERS Safety Report 8172411-2 (Version None)
Quarter: 2012Q1

REPORT INFORMATION
  Report Type: 
  Country: None (occurrence: None)
  Receive Date: 20120224
  Receipt Date: 20120224
  Transmission Date: 20120608
  Serious: Yes (Other)
  Sender: FDA-Public Use
  Company Number: None

PATIENT
  Age: 39 Year
  Sex: Female

DRUGS (1)
  1. XALKORI 250MG PFIZER [Suspect]
     Indication: NON-SMALL CELL LUNG CANCER
     Dosage: 250MG BID PO
     Route: 048
     Dates: start: 20111115

REACTIONS (2)
  - DYSPNOEA [None]
  - HIRSUTISM [None]
